FAERS Safety Report 11732112 (Version 1)
Quarter: 2015Q4

REPORT INFORMATION
  Report Type: Spontaneous
  Country: US (occurrence: US)
  Receive Date: 20151110
  Receipt Date: 20151110
  Transmission Date: 20160304
  Serious: No
  Sender: FDA-Public Use
  Company Number: US-ELI_LILLY_AND_COMPANY-US201203006588

PATIENT
  Age: 79 Year
  Sex: Female

DRUGS (4)
  1. CHOLESTYRAMIN [Concomitant]
     Indication: CROHN^S DISEASE
  2. FORTEO [Suspect]
     Active Substance: TERIPARATIDE
     Dosage: 20 UG, UNK
     Route: 065
  3. FORTEO [Suspect]
     Active Substance: TERIPARATIDE
     Dosage: 20 UG, UNK
  4. REMICADE [Concomitant]
     Active Substance: INFLIXIMAB
     Indication: CROHN^S DISEASE

REACTIONS (5)
  - Abdominal discomfort [Recovering/Resolving]
  - Intentional product misuse [Unknown]
  - Dyspepsia [Unknown]
  - Nausea [Unknown]
  - Abdominal pain upper [Recovered/Resolved]
